FAERS Safety Report 11565614 (Version 1)
Quarter: 2015Q3

REPORT INFORMATION
  Report Type: Spontaneous
  Country: US (occurrence: US)
  Receive Date: 20150916
  Receipt Date: 20150916
  Transmission Date: 20151125
  Serious: No
  Sender: FDA-Public Use
  Company Number: US-ELI_LILLY_AND_COMPANY-US200905000941

PATIENT
  Sex: Female

DRUGS (2)
  1. FORTEO [Suspect]
     Active Substance: TERIPARATIDE
     Dosage: 20 UG, DAILY (1/D)
     Dates: start: 20090421
  2. CALCIUM [Concomitant]
     Active Substance: CALCIUM

REACTIONS (4)
  - Fatigue [Unknown]
  - Hearing impaired [Unknown]
  - Anxiety [Unknown]
  - Visual impairment [Unknown]
